FAERS Safety Report 19332171 (Version 1)
Quarter: 2021Q2

REPORT INFORMATION
  Report Type: Other
  Country: CA (occurrence: CA)
  Receive Date: 20210529
  Receipt Date: 20210529
  Transmission Date: 20210717
  Serious: Yes (Other)
  Sender: FDA-Public Use
  Company Number: CA-ROCHE-1624310

PATIENT
  Age: 75 Year
  Sex: Female

DRUGS (18)
  1. BENADRYL [Concomitant]
     Active Substance: DIPHENHYDRAMINE HYDROCHLORIDE
     Indication: PREMEDICATION
     Route: 048
     Dates: start: 20150224
  2. PREDNISONE. [Concomitant]
     Active Substance: PREDNISONE
  3. LORAZEPAM. [Concomitant]
     Active Substance: LORAZEPAM
  4. TIMOLOL. [Concomitant]
     Active Substance: TIMOLOL
  5. ACETYLSALICYLIC ACID [Concomitant]
     Active Substance: ASPIRIN
  6. TYLENOL [Concomitant]
     Active Substance: ACETAMINOPHEN
  7. RITUXAN [Suspect]
     Active Substance: RITUXIMAB
     Indication: NEUROMYELITIS OPTICA SPECTRUM DISORDER
     Dosage: PREVIOUS RITUXAN INFUSION DATE: 11/FEB/2020.
     Route: 042
     Dates: start: 20140808, end: 20140822
  8. TYLENOL [Concomitant]
     Active Substance: ACETAMINOPHEN
     Indication: PREMEDICATION
     Route: 048
     Dates: start: 20150224
  9. PANTOLOC [Concomitant]
     Active Substance: PANTOPRAZOLE SODIUM
  10. TRAVOPROST. [Concomitant]
     Active Substance: TRAVOPROST
  11. RITUXAN [Suspect]
     Active Substance: RITUXIMAB
     Dosage: FREQUENCY: DAY 1, DAY 15 (1ST RPAP DOSE)
     Route: 042
     Dates: start: 20150224, end: 20200225
  12. METHYLPREDNISOLONE. [Concomitant]
     Active Substance: METHYLPREDNISOLONE
     Indication: PREMEDICATION
     Route: 042
     Dates: start: 20150224
  13. VITAMIN D3 [Concomitant]
     Active Substance: CHOLECALCIFEROL
  14. ALENDRONATE [Concomitant]
     Active Substance: ALENDRONATE SODIUM
  15. SOLU?MEDROL [Concomitant]
     Active Substance: METHYLPREDNISOLONE SODIUM SUCCINATE
     Indication: PREMEDICATION
     Route: 042
     Dates: start: 20150224
  16. RITUXAN [Suspect]
     Active Substance: RITUXIMAB
     Route: 042
     Dates: start: 20200813
  17. DORZOLAMIDE [Concomitant]
     Active Substance: DORZOLAMIDE
  18. AMLODIPINE [Concomitant]
     Active Substance: AMLODIPINE BESYLATE

REACTIONS (7)
  - Off label use [Unknown]
  - Hypertension [Unknown]
  - Blood pressure increased [Unknown]
  - Blood pressure diastolic abnormal [Unknown]
  - Blood pressure systolic increased [Unknown]
  - Erythema [Unknown]
  - Oxygen saturation decreased [Unknown]

NARRATIVE: CASE EVENT DATE: 20160321
